FAERS Safety Report 8482388-8 (Version None)
Quarter: 2012Q3

REPORT INFORMATION
  Report Type: 
  Country: None (occurrence: None)
  Receive Date: 20120702
  Receipt Date: 20120622
  Transmission Date: 20120928
  Serious: Yes (Hospitalization)
  Sender: FDA-Public Use
  Company Number: US-GLAXOSMITHKLINE-A0699088A

PATIENT
  Age: 47 Year
  Sex: Female
  Weight: 136.4 kg

DRUGS (2)
  1. METOPROLOL [Concomitant]
     Dates: start: 20030101
  2. AVANDIA [Suspect]
     Indication: TYPE 2 DIABETES MELLITUS
     Dosage: 4MG PER DAY
     Route: 048
     Dates: start: 20030117, end: 20030901

REACTIONS (4)
  - TRANSIENT ISCHAEMIC ATTACK [None]
  - CARDIAC FAILURE [None]
  - CARDIAC FAILURE CONGESTIVE [None]
  - MYOCARDIAL INFARCTION [None]
